FAERS Safety Report 10557328 (Version 1)
Quarter: 2014Q4

REPORT INFORMATION
  Report Type: Spontaneous
  Country: US (occurrence: None)
  Receive Date: 20141029
  Receipt Date: 20141029
  Transmission Date: 20150529
  Serious: No
  Sender: FDA-Public Use
  Company Number: C14 066

PATIENT
  Age: 55 Year
  Sex: Female

DRUGS (1)
  1. FIRST-VANCOMYCIN 50 (50 MG/ML) [Suspect]
     Active Substance: VANCOMYCIN HYDROCHLORIDE
     Indication: CLOSTRIDIUM DIFFICILE INFECTION
     Route: 048
     Dates: start: 20141011, end: 20141012

REACTIONS (2)
  - Accidental overdose [None]
  - Product label issue [None]

NARRATIVE: CASE EVENT DATE: 20141012
